FAERS Safety Report 17860425 (Version 3)
Quarter: 2020Q3

REPORT INFORMATION
  Report Type: Spontaneous
  Country: IN (occurrence: IN)
  Receive Date: 20200604
  Receipt Date: 20200702
  Transmission Date: 20201103
  Serious: Yes (Hospitalization, Other)
  Sender: FDA-Public Use
  Company Number: IN-TORRENT-00002535

PATIENT
  Age: 44 Year
  Sex: Male

DRUGS (6)
  1. MOXIFLOXACIN. [Suspect]
     Active Substance: MOXIFLOXACIN
     Indication: DISSEMINATED TUBERCULOSIS
     Route: 048
  2. ETHAMBUTOL [Concomitant]
     Active Substance: ETHAMBUTOL HYDROCHLORIDE
     Indication: TUBERCULOSIS
  3. PYRIDOXINE [Concomitant]
     Active Substance: PYRIDOXINE
     Indication: TUBERCULOSIS
  4. ISONIAZID. [Concomitant]
     Active Substance: ISONIAZID
     Indication: TUBERCULOSIS
  5. ETHIONAMIDE [Concomitant]
     Active Substance: ETHIONAMIDE
     Indication: TUBERCULOSIS
  6. AMIKACIN. [Concomitant]
     Active Substance: AMIKACIN
     Indication: TUBERCULOSIS
     Route: 042

REACTIONS (1)
  - Toxic encephalopathy [Recovered/Resolved]
